FAERS Safety Report 8985681 (Version 1)
Quarter: 2012Q4

REPORT INFORMATION
  Report Type: 
  Country: GB (occurrence: GB)
  Receive Date: 20121226
  Receipt Date: 20121226
  Transmission Date: 20130627
  Serious: Yes (Other)
  Sender: FDA-Public Use
  Company Number: GB-PFIZER INC-2012001915

PATIENT
  Age: 67 Year
  Sex: Female

DRUGS (1)
  1. LATANOPROST [Suspect]
     Dosage: UNK
     Route: 047
     Dates: start: 20050412, end: 20120103

REACTIONS (4)
  - Feeling abnormal [Unknown]
  - Balance disorder [Recovered/Resolved]
  - Vertigo [Recovered/Resolved]
  - Eye irritation [Unknown]
